FAERS Safety Report 6595109-0 (Version None)
Quarter: 2010Q1

REPORT INFORMATION
  Report Type: 
  Country: None (occurrence: None)
  Receive Date: 20100212
  Receipt Date: 20100203
  Transmission Date: 20100710
  Serious: Yes (Life-Threatening, Hospitalization, Other)
  Sender: FDA-Public Use
  Company Number: 1000003494

PATIENT
  Age: 62 Year
  Sex: Male
  Weight: 76.2 kg

DRUGS (5)
  1. CELEXA [Suspect]
     Indication: DEPRESSION
     Dosage: 20 MG (20 MG, 1 IN 1 D), ORAL
     Route: 048
     Dates: start: 20060701, end: 20060801
  2. ALTACE [Concomitant]
  3. ATENOLOL [Concomitant]
  4. ZOCOR [Concomitant]
  5. ANTI-HYPERTENSIVE MEDICATION NOS [Concomitant]

REACTIONS (9)
  - CONVULSION [None]
  - EYELID INJURY [None]
  - FACIAL BONES FRACTURE [None]
  - FALL [None]
  - MULTIPLE FRACTURES [None]
  - MULTIPLE INJURIES [None]
  - PARAESTHESIA [None]
  - SYNCOPE [None]
  - VISUAL FIELD DEFECT [None]
